FAERS Safety Report 18427253 (Version 1)
Quarter: 2020Q4

REPORT INFORMATION
  Report Type: Spontaneous
  Country: US (occurrence: US)
  Receive Date: 20201026
  Receipt Date: 20201026
  Transmission Date: 20210114
  Serious: Yes (Other)
  Sender: FDA-Public Use
  Company Number: None

PATIENT
  Age: 57 Year
  Sex: Female
  Weight: 74.25 kg

DRUGS (10)
  1. PAROXETINE HCL [Concomitant]
     Active Substance: PAROXETINE HYDROCHLORIDE
  2. PAROXETINE HCL 20 MG TABLETS [Suspect]
     Active Substance: PAROXETINE
     Indication: MAJOR DEPRESSION
     Dosage: ?          QUANTITY:90 TABLET(S);?
     Route: 048
  3. KLONOPIN [Concomitant]
     Active Substance: CLONAZEPAM
  4. IBUPROFEN. [Concomitant]
     Active Substance: IBUPROFEN
  5. NITROGLYCERIN. [Concomitant]
     Active Substance: NITROGLYCERIN
  6. GABAPENTIN. [Concomitant]
     Active Substance: GABAPENTIN
  7. COSTCO VITAMIN C [Concomitant]
  8. ASPIRIN 81MG [Concomitant]
     Active Substance: ASPIRIN
  9. COSTCO MULTIVITAMIN [Concomitant]
  10. CITRACAL W/VIT D [Concomitant]

REACTIONS (5)
  - Abdominal discomfort [None]
  - Middle insomnia [None]
  - Abdominal pain upper [None]
  - Pain [None]
  - Oesophageal pain [None]

NARRATIVE: CASE EVENT DATE: 20201011
